FAERS Safety Report 25177279 (Version 2)
Quarter: 2025Q2

REPORT INFORMATION
  Report Type: Spontaneous
  Country: CO (occurrence: CO)
  Receive Date: 20250409
  Receipt Date: 20250416
  Transmission Date: 20250717
  Serious: Yes (Hospitalization, Other)
  Sender: ALEXION PHARMACEUTICALS
  Company Number: CO-AstraZeneca-CH-00841676A

PATIENT
  Age: 74 Year
  Weight: 73 kg

DRUGS (1)
  1. TAGRISSO [Suspect]
     Active Substance: OSIMERTINIB
     Indication: Benign lung neoplasm
     Dosage: 80 MILLIGRAM, QD

REACTIONS (2)
  - Lung carcinoma cell type unspecified recurrent [Unknown]
  - Product dose omission issue [Unknown]
